FAERS Safety Report 23782033 (Version 1)
Quarter: 2024Q2

REPORT INFORMATION
  Report Type: Spontaneous
  Country: US (occurrence: US)
  Receive Date: 20240425
  Receipt Date: 20240425
  Transmission Date: 20240716
  Serious: Yes (Other)
  Sender: FDA-Public Use
  Company Number: US-CADILA HEALTHCARE LIMITED-US-ZYDUS-105837

PATIENT

DRUGS (8)
  1. METOPROLOL [Suspect]
     Active Substance: METOPROLOL
     Indication: Cardiac failure
     Dosage: 50 MILLIGRAM, QD
     Route: 065
  2. METOPROLOL [Suspect]
     Active Substance: METOPROLOL
     Indication: Ejection fraction decreased
  3. SPIRONOLACTONE [Suspect]
     Active Substance: SPIRONOLACTONE
     Indication: Cardiac failure
     Dosage: 50 MILLIGRAM, QD
     Route: 065
  4. SPIRONOLACTONE [Suspect]
     Active Substance: SPIRONOLACTONE
     Indication: Ejection fraction decreased
  5. DAPAGLIFLOZIN [Suspect]
     Active Substance: DAPAGLIFLOZIN
     Indication: Cardiac failure
     Dosage: 10 MILLIGRAM, QD
     Route: 065
  6. DAPAGLIFLOZIN [Suspect]
     Active Substance: DAPAGLIFLOZIN
     Indication: Ejection fraction decreased
  7. SACUBITRIL\VALSARTAN [Suspect]
     Active Substance: SACUBITRIL\VALSARTAN
     Indication: Cardiac failure
     Dosage: 97-103 MG
     Route: 065
  8. SACUBITRIL\VALSARTAN [Suspect]
     Active Substance: SACUBITRIL\VALSARTAN
     Indication: Ejection fraction decreased

REACTIONS (3)
  - Hyperkalaemia [Unknown]
  - Metabolic acidosis [Unknown]
  - Ventricular tachycardia [Recovered/Resolved]
